FAERS Safety Report 14230472 (Version 1)
Quarter: 2017Q4

REPORT INFORMATION
  Report Type: Spontaneous
  Country: US (occurrence: US)
  Receive Date: 20171128
  Receipt Date: 20171128
  Transmission Date: 20180321
  Serious: Yes (Hospitalization)
  Sender: FDA-Public Use
  Company Number: US-PFIZER INC-2017464537

PATIENT
  Age: 58 Year
  Sex: Male
  Weight: 112 kg

DRUGS (2)
  1. PREPARATION H CREAM MAX STRENGTH [Suspect]
     Active Substance: GLYCERIN\PETROLATUM\PHENYLEPHRINE HYDROCHLORIDE\PRAMOXINE HYDROCHLORIDE
     Indication: HAEMORRHOIDS
     Dosage: UNK
     Dates: end: 20171024
  2. PREPARATION H CREAM MAX STRENGTH [Suspect]
     Active Substance: GLYCERIN\PETROLATUM\PHENYLEPHRINE HYDROCHLORIDE\PRAMOXINE HYDROCHLORIDE
     Indication: DYSURIA
     Dosage: UNK, AS NEEDED
     Dates: start: 2017

REACTIONS (4)
  - Intentional product misuse [Unknown]
  - Drug ineffective [Unknown]
  - Skin burning sensation [Recovered/Resolved]
  - Pain [Recovered/Resolved]

NARRATIVE: CASE EVENT DATE: 201710
